FAERS Safety Report 9998206 (Version 1)
Quarter: 2014Q1

REPORT INFORMATION
  Report Type: Spontaneous
  Country: DE (occurrence: DE)
  Receive Date: 20140311
  Receipt Date: 20140311
  Transmission Date: 20141002
  Serious: Yes (Life-Threatening, Hospitalization)
  Sender: FDA-Public Use
  Company Number: GXKR2014DE001137

PATIENT
  Sex: 0

DRUGS (7)
  1. ACETYLSALICYLIC ACID [Suspect]
     Indication: CORONARY ARTERIAL STENT INSERTION
     Dosage: 100 MG, QD
     Route: 048
     Dates: start: 20140103
  2. PRASUGREL [Interacting]
     Indication: CORONARY ARTERIAL STENT INSERTION
     Dosage: 10 MG, QD
     Route: 048
     Dates: start: 20140103, end: 20140220
  3. BISOPROLOL [Concomitant]
     Indication: CORONARY ARTERY DISEASE
     Dosage: 2.5 MG, QD
     Dates: start: 20140103
  4. RAMIPRIL [Concomitant]
     Indication: CORONARY ARTERY DISEASE
     Dosage: 2.5 MG, QD
     Dates: start: 20140103
  5. PANTOPRAZOL [Concomitant]
     Indication: PROPHYLAXIS AGAINST GASTROINTESTINAL ULCER
     Dosage: 20 MG, QD
     Dates: start: 20140103
  6. ATORVASTATIN [Concomitant]
     Indication: CORONARY ARTERY DISEASE
     Dosage: 20 MG, BID
     Dates: start: 20140103
  7. LATANOTIM VISION [Concomitant]
     Indication: GLAUCOMA
     Dosage: 1 DF, QD

REACTIONS (1)
  - Intracranial tumour haemorrhage [Unknown]
